FAERS Safety Report 4582216-7 (Version None)
Quarter: 2005Q1

REPORT INFORMATION
  Report Type: 
  Country: None (occurrence: None)
  Receive Date: 20050210
  Receipt Date: 20050210
  Transmission Date: 20050727
  Serious: No
  Sender: FDA-Public Use
  Company Number: None

PATIENT
  Age: 80 Year
  Sex: Female

DRUGS (10)
  1. TIMOLOL MALEATE [Suspect]
     Indication: GLAUCOMA
     Dosage: ONE DROP IN BOTH EYES TWICE DAILY - SP ADV IS DIFFERENT THAN LABEL
     Route: 047
  2. TRICOR [Concomitant]
  3. HYDROXYZINE HCL [Concomitant]
  4. DIGITEK [Concomitant]
  5. FUROSEMIDE [Concomitant]
  6. LEVOXYL [Concomitant]
  7. GLYBURIDE [Concomitant]
  8. METFORMIN HCL [Concomitant]
  9. LISINOPRIL [Concomitant]
  10. ALPHAGAN P STER OP SOLN [Concomitant]

REACTIONS (3)
  - APPLICATION SITE IRRITATION [None]
  - EYE DISORDER [None]
  - PHARMACEUTICAL PRODUCT COMPLAINT [None]
